FAERS Safety Report 15540769 (Version 1)
Quarter: 2018Q4

REPORT INFORMATION
  Report Type: Spontaneous
  Country: US (occurrence: US)
  Receive Date: 20181016
  Receipt Date: 20181016
  Transmission Date: 20190205
  Serious: Yes (Hospitalization)
  Sender: FDA-Public Use
  Company Number: None

PATIENT
  Age: 40 Year
  Sex: Female

DRUGS (20)
  1. PREDNISONE. [Concomitant]
     Active Substance: PREDNISONE
  2. SILDENAFIL. [Concomitant]
     Active Substance: SILDENAFIL
  3. TRIAMCINOLONE TOP CREAM [Concomitant]
  4. FAMOTIDINE. [Concomitant]
     Active Substance: FAMOTIDINE
  5. TRAMADOL. [Concomitant]
     Active Substance: TRAMADOL
  6. SUCRALFATE. [Concomitant]
     Active Substance: SUCRALFATE
  7. DICLOFENAC [Concomitant]
     Active Substance: DICLOFENAC
  8. FLOLAN [Concomitant]
     Active Substance: EPOPROSTENOL SODIUM
  9. ALENDRONATE [Concomitant]
     Active Substance: ALENDRONATE SODIUM
  10. NORCO [Concomitant]
     Active Substance: ACETAMINOPHEN\HYDROCODONE BITARTRATE
  11. FOLIC ACID. [Concomitant]
     Active Substance: FOLIC ACID
  12. LETAIRIS [Suspect]
     Active Substance: AMBRISENTAN
     Indication: PULMONARY ARTERIAL HYPERTENSION
     Route: 048
     Dates: start: 201808, end: 201809
  13. MIDODRINE [Concomitant]
     Active Substance: MIDODRINE
  14. SPIRONOLACTONE. [Concomitant]
     Active Substance: SPIRONOLACTONE
  15. HYDROXYCHLOROQUINE [Concomitant]
     Active Substance: HYDROXYCHLOROQUINE
  16. POTASSIUM CHLORIDE. [Concomitant]
     Active Substance: POTASSIUM CHLORIDE
  17. METOLAZONE. [Concomitant]
     Active Substance: METOLAZONE
  18. FUROSEMIDE. [Concomitant]
     Active Substance: FUROSEMIDE
  19. VITAMIN D3 [Concomitant]
     Active Substance: CHOLECALCIFEROL
  20. MIRALAX [Concomitant]
     Active Substance: POLYETHYLENE GLYCOL 3350

REACTIONS (2)
  - Fluid overload [None]
  - Drug intolerance [None]

NARRATIVE: CASE EVENT DATE: 20180911
